FAERS Safety Report 16675061 (Version 1)
Quarter: 2019Q3

REPORT INFORMATION
  Report Type: Spontaneous
  Country: US (occurrence: US)
  Receive Date: 20190806
  Receipt Date: 20190806
  Transmission Date: 20191004
  Serious: No
  Sender: FDA-Public Use
  Company Number: US-JNJFOC-20190803299

PATIENT

DRUGS (1)
  1. IMBRUVICA [Suspect]
     Active Substance: IBRUTINIB
     Indication: PRODUCT USED FOR UNKNOWN INDICATION
     Dosage: 140 MG, BID
     Route: 065

REACTIONS (5)
  - Infection [Unknown]
  - Pyrexia [Unknown]
  - Off label use [Unknown]
  - Neutropenia [Not Recovered/Not Resolved]
  - Product use issue [Unknown]
